FAERS Safety Report 8772367 (Version 2)
Quarter: 2012Q4

REPORT INFORMATION
  Report Type: 
  Country: CA (occurrence: CA)
  Receive Date: 20120905
  Receipt Date: 20120905
  Transmission Date: 20130627
  Serious: Yes (Life-Threatening, Other)
  Sender: FDA-Public Use
  Company Number: PHHY2011CA77222

PATIENT
  Age: 75 Year
  Sex: Female

DRUGS (4)
  1. ACLASTA [Suspect]
     Indication: OSTEOPOROSIS
     Dosage: 5 mg/100ml
     Route: 042
     Dates: start: 20110823
  2. ACLASTA [Suspect]
     Dosage: 5 mg/100ml
     Route: 042
     Dates: start: 201208
  3. CALCIUM [Concomitant]
     Dosage: 500 mg, UNK
  4. VITAMIN D [Concomitant]
     Dosage: 400 UKN, BID

REACTIONS (6)
  - Pancreatic carcinoma [Not Recovered/Not Resolved]
  - Adenocarcinoma [Unknown]
  - Abdominal pain upper [Unknown]
  - Renal pain [Unknown]
  - Movement disorder [Unknown]
  - Headache [Unknown]
